FAERS Safety Report 18417546 (Version 2)
Quarter: 2020Q4

REPORT INFORMATION
  Report Type: Spontaneous
  Country: PT (occurrence: PT)
  Receive Date: 20201023
  Receipt Date: 20201103
  Transmission Date: 20210114
  Serious: Yes (Hospitalization)
  Sender: FDA-Public Use
  Company Number: PT-BAUSCH-BL-2020-030489

PATIENT
  Age: 12 Year
  Sex: Male

DRUGS (4)
  1. METOCLOPRAMIDE. [Suspect]
     Active Substance: METOCLOPRAMIDE
     Indication: VIRAL INFECTION
     Route: 042
     Dates: start: 201406
  2. PARACETAMOL [Concomitant]
     Active Substance: ACETAMINOPHEN
     Indication: VIRAL INFECTION
     Route: 042
     Dates: start: 201406
  3. PARACETAMOL [Concomitant]
     Active Substance: ACETAMINOPHEN
     Route: 065
  4. PARACETAMOL [Concomitant]
     Active Substance: ACETAMINOPHEN
     Route: 065

REACTIONS (1)
  - Extrapyramidal disorder [Unknown]
